FAERS Safety Report 5693725-1 (Version None)
Quarter: 2008Q2

REPORT INFORMATION
  Report Type: 
  Country: None (occurrence: None)
  Receive Date: 20080403
  Receipt Date: 20080331
  Transmission Date: 20081010
  Serious: Yes (Life-Threatening)
  Sender: FDA-Public Use
  Company Number: FR-ASTRAZENECA-2007CG00594

PATIENT
  Age: 58 Year
  Sex: Female

DRUGS (4)
  1. ENTOCORT EC [Suspect]
     Indication: CROHN'S DISEASE
     Route: 048
     Dates: start: 20061201, end: 20070307
  2. ENTOCORT EC [Suspect]
     Route: 048
     Dates: start: 20070308, end: 20070309
  3. ENTOCORT EC [Suspect]
     Route: 048
     Dates: start: 20070310
  4. IMUREL [Concomitant]
     Indication: CROHN'S DISEASE
     Dates: start: 20061201

REACTIONS (2)
  - HYPOKALAEMIA [None]
  - METABOLIC ALKALOSIS [None]
